FAERS Safety Report 8818050 (Version 1)
Quarter: 2012Q4

REPORT INFORMATION
  Report Type: 
  Country: US (occurrence: US)
  Receive Date: 20121001
  Receipt Date: 20121001
  Transmission Date: 20130627
  Serious: Yes (Hospitalization)
  Sender: FDA-Public Use
  Company Number: US-009507513-1209USA008352

PATIENT
  Age: 56 Year
  Sex: Female

DRUGS (1)
  1. VICTRELIS [Suspect]
     Indication: HEPATITIS C
     Dosage: 800 mg, tid
     Route: 048
     Dates: start: 20120626, end: 20120910

REACTIONS (4)
  - Arthritis [Unknown]
  - Vomiting [Unknown]
  - Constipation [Unknown]
  - Anaemia [Unknown]
